FAERS Safety Report 6147250-4 (Version None)
Quarter: 2009Q2

REPORT INFORMATION
  Report Type: 
  Country: None (occurrence: None)
  Receive Date: 20090408
  Receipt Date: 20090327
  Transmission Date: 20091009
  Serious: Yes (Death)
  Sender: FDA-Public Use
  Company Number: GR-TEVA-190575ISR

PATIENT
  Age: 74 Year
  Sex: Male

DRUGS (7)
  1. CISPLATIN [Suspect]
     Indication: HEAD AND NECK CANCER
     Route: 042
     Dates: start: 20070301, end: 20070308
  2. CETUXIMAB [Suspect]
     Indication: HEAD AND NECK CANCER
     Route: 042
     Dates: start: 20070301, end: 20070308
  3. DIGOXIN [Concomitant]
     Dates: start: 19900615, end: 20070315
  4. ATENOLOL [Concomitant]
     Dates: start: 19900615, end: 20070315
  5. FUROSEMIDE [Concomitant]
     Dates: start: 19900615, end: 20070315
  6. SPIRONOLACTONE [Concomitant]
     Dates: start: 20000615, end: 20070315
  7. ISOSORBIDE MONONITRATE [Concomitant]
     Dates: start: 19900615, end: 20070315

REACTIONS (1)
  - ACUTE MYOCARDIAL INFARCTION [None]
